FAERS Safety Report 4738094-6 (Version None)
Quarter: 2005Q3

REPORT INFORMATION
  Report Type: 
  Country: None (occurrence: None)
  Receive Date: 20050809
  Receipt Date: 20050728
  Transmission Date: 20060218
  Serious: Yes (Hospitalization)
  Sender: FDA-Public Use
  Company Number: JP-JNJFOC-20050506725

PATIENT
  Sex: Female
  Weight: 42.2 kg

DRUGS (6)
  1. CRAVIT [Suspect]
     Indication: UPPER RESPIRATORY TRACT INFLAMMATION
     Route: 048
  2. VOLTAREN [Suspect]
     Indication: DRUG USE FOR UNKNOWN INDICATION
     Route: 048
  3. TRANSAMIN [Concomitant]
     Route: 065
  4. MUCODYNE [Concomitant]
     Route: 048
  5. TOWAZUREN [Concomitant]
     Route: 048
  6. TOWAZUREN [Concomitant]
     Route: 048

REACTIONS (4)
  - EOSINOPHILIC PNEUMONIA [None]
  - LYMPHOCYTE COUNT DECREASED [None]
  - MONOCYTE COUNT DECREASED [None]
  - PLATELET COUNT INCREASED [None]
